FAERS Safety Report 13986380 (Version 1)
Quarter: 2017Q3

REPORT INFORMATION
  Report Type: Spontaneous
  Country: CA (occurrence: CA)
  Receive Date: 20170919
  Receipt Date: 20170919
  Transmission Date: 20171128
  Serious: Yes (Other)
  Sender: FDA-Public Use
  Company Number: CA-AMGEN-CANSP2017139016

PATIENT

DRUGS (15)
  1. HYDERM [Concomitant]
     Dosage: UNK UNK, AS NECESSARY
  2. VITAMIN B [Concomitant]
     Active Substance: VITAMIN B
  3. SENOKOT [Concomitant]
     Active Substance: SENNOSIDES
     Dosage: 8.6 MG, UNK
     Dates: start: 20170713
  4. VAGIFEM [Concomitant]
     Active Substance: ESTRADIOL
  5. APO AMOXYCILLIN [Concomitant]
  6. EURO-FER [Concomitant]
     Dosage: 300 MG, UNK
     Dates: start: 20170607, end: 201708
  7. ELAVIL [Concomitant]
     Active Substance: AMITRIPTYLINE HYDROCHLORIDE
  8. BETADERM [Concomitant]
     Active Substance: BETAMETHASONE VALERATE
  9. APO-K [Concomitant]
     Active Substance: POTASSIUM CHLORIDE
  10. PROLIA [Suspect]
     Active Substance: DENOSUMAB
     Indication: PRODUCT USED FOR UNKNOWN INDICATION
     Dosage: UNK
     Route: 065
     Dates: start: 2013
  11. OXYCOCET [Suspect]
     Active Substance: ACETAMINOPHEN\OXYCODONE HYDROCHLORIDE
     Indication: PAIN
     Route: 065
  12. APO-RANITIDINE [Concomitant]
     Active Substance: RANITIDINE
  13. VITAMIN C [Concomitant]
     Active Substance: ASCORBIC ACID
  14. CALCIUM [Concomitant]
     Active Substance: CALCIUM
  15. OXYNEO [Concomitant]
     Active Substance: OXYCODONE
     Dosage: 10 MG, UNK
     Dates: start: 20170711, end: 20170716

REACTIONS (14)
  - Spinal fracture [Unknown]
  - Muscle spasms [Unknown]
  - Peripheral swelling [Unknown]
  - Drug effect incomplete [Unknown]
  - Restless legs syndrome [Unknown]
  - Gingival bleeding [Unknown]
  - Vomiting [Unknown]
  - Thrombosis [Unknown]
  - Knee arthroplasty [Unknown]
  - Hypoaesthesia [Unknown]
  - Cartilage injury [Unknown]
  - Tooth disorder [Unknown]
  - Fall [Unknown]
  - Tremor [Unknown]

NARRATIVE: CASE EVENT DATE: 2013
